FAERS Safety Report 9386205 (Version 2)
Quarter: 2013Q4

REPORT INFORMATION
  Report Type: Report from Study
  Country: GB (occurrence: GB)
  Receive Date: 20130708
  Receipt Date: 20131005
  Transmission Date: 20140711
  Serious: Yes (Death)
  Sender: FDA-Public Use
  Company Number: GB-ROCHE-1242862

PATIENT
  Sex: Male

DRUGS (2)
  1. RITUXIMAB [Suspect]
     Indication: RHEUMATOID ARTHRITIS
     Route: 065
     Dates: start: 20110804
  2. AZATHIOPRINE [Concomitant]
     Route: 065
     Dates: start: 20110510

REACTIONS (3)
  - Renal failure chronic [Fatal]
  - Renal cancer metastatic [Fatal]
  - Bronchopneumonia [Fatal]
